FAERS Safety Report 5741366-X (Version None)
Quarter: 2008Q2

REPORT INFORMATION
  Report Type: 
  Country: None (occurrence: None)
  Receive Date: 20080514
  Receipt Date: 20080506
  Transmission Date: 20081010
  Serious: Yes (Other)
  Sender: FDA-Public Use
  Company Number: 2008MP000027

PATIENT
  Age: 72 Year
  Sex: Female

DRUGS (3)
  1. SALAGEN [Suspect]
     Indication: DRY MOUTH
     Dosage: 15 MG, 3 IN 1 D, ORAL
     Route: 048
     Dates: start: 20070901, end: 20080127
  2. ACTONEL [Concomitant]
  3. ASPIRIN [Concomitant]

REACTIONS (3)
  - CARDIAC FIBRILLATION [None]
  - GASTRIC DISORDER [None]
  - MALAISE [None]
